FAERS Safety Report 7412979-4 (Version None)
Quarter: 2011Q2

REPORT INFORMATION
  Report Type: 
  Country: None (occurrence: None)
  Receive Date: 20110413
  Receipt Date: 20110411
  Transmission Date: 20111010
  Serious: Yes (Disabling)
  Sender: FDA-Public Use
  Company Number: AU-MERCK-1104USA01103

PATIENT
  Age: 65 Year
  Sex: Female

DRUGS (4)
  1. ZOCOR [Suspect]
     Route: 048
  2. ASPIRIN [Concomitant]
     Route: 065
  3. ENALAPRIL MALEATE [Concomitant]
     Route: 048
  4. ACETAMINOPHEN [Concomitant]
     Indication: MYALGIA
     Route: 065

REACTIONS (7)
  - MYALGIA [None]
  - FOOD INTERACTION [None]
  - MUSCULAR WEAKNESS [None]
  - MYOPATHY [None]
  - BLOOD CREATINE PHOSPHOKINASE INCREASED [None]
  - BLOOD POTASSIUM INCREASED [None]
  - MYOGLOBIN BLOOD INCREASED [None]
